FAERS Safety Report 14304307 (Version 2)
Quarter: 2018Q3

REPORT INFORMATION
  Report Type: Spontaneous
  Country: GB (occurrence: GB)
  Receive Date: 20171219
  Receipt Date: 20180727
  Transmission Date: 20181010
  Serious: Yes (Hospitalization, Other)
  Sender: FDA-Public Use
  Company Number: GB-OTSUKA-DJ201405850

PATIENT
  Age: 63 Year
  Sex: Female

DRUGS (8)
  1. ABILIFY MAINTENA [Suspect]
     Active Substance: ARIPIPRAZOLE
     Dosage: 400 MG, QM
     Route: 030
  2. FLUOXETINE [Concomitant]
     Active Substance: FLUOXETINE HYDROCHLORIDE
     Indication: DEPRESSIVE SYMPTOM
     Dosage: 15 MG, QD
     Route: 048
  3. FLUOXETINE [Concomitant]
     Active Substance: FLUOXETINE HYDROCHLORIDE
     Dosage: 20 MG, QD
     Route: 048
  4. ABILIFY MAINTENA [Suspect]
     Active Substance: ARIPIPRAZOLE
     Indication: SCHIZOAFFECTIVE DISORDER
     Dosage: 300 MG
     Route: 030
  5. OPC?14597 [Suspect]
     Active Substance: CILOSTAZOL
     Indication: SCHIZOAFFECTIVE DISORDER
     Dosage: 300 MG, UNK
     Route: 030
  6. FLUOXETINE [Concomitant]
     Active Substance: FLUOXETINE HYDROCHLORIDE
     Dosage: 30 MG, QD
     Route: 048
  7. ABILIFY [Suspect]
     Active Substance: ARIPIPRAZOLE
     Indication: PSYCHOTIC DISORDER
     Dosage: 15 MG, UNK
     Route: 048
  8. FLUOXETINE [Concomitant]
     Active Substance: FLUOXETINE HYDROCHLORIDE
     Dosage: 20 MG, QD
     Route: 048

REACTIONS (9)
  - Affective disorder [Unknown]
  - Feeling abnormal [Unknown]
  - Mania [Recovered/Resolved]
  - Confusional state [Unknown]
  - Product use in unapproved indication [Unknown]
  - Psychotic disorder [Unknown]
  - Psychotic symptom [Unknown]
  - Hallucination, auditory [Unknown]
  - Prescribed underdose [Unknown]

NARRATIVE: CASE EVENT DATE: 2010
